FAERS Safety Report 9917643 (Version 1)
Quarter: 2014Q1

REPORT INFORMATION
  Report Type: Spontaneous
  Country: JP (occurrence: JP)
  Receive Date: 20140221
  Receipt Date: 20140221
  Transmission Date: 20141002
  Serious: Yes (Life-Threatening, Other)
  Sender: FDA-Public Use
  Company Number: JP-MERCK-1402JPN009750

PATIENT
  Age: 39 Year
  Sex: Male

DRUGS (5)
  1. RALTEGRAVIR POTASSIUM [Suspect]
     Indication: ACQUIRED IMMUNODEFICIENCY SYNDROME
  2. ABACAVIR SULFATE (+) LAMIVUDINE [Suspect]
     Indication: ACQUIRED IMMUNODEFICIENCY SYNDROME
  3. LOPINAVIR (+) RITONAVIR [Suspect]
  4. ATOVAQUONE [Concomitant]
  5. AMPHOTERICIN B [Concomitant]

REACTIONS (2)
  - Histiocytosis haematophagic [Recovering/Resolving]
  - Disseminated intravascular coagulation [Recovering/Resolving]
